FAERS Safety Report 9379149 (Version 2)
Quarter: 2013Q3

REPORT INFORMATION
  Report Type: Report from Study
  Country: US (occurrence: US)
  Receive Date: 20130702
  Receipt Date: 20130725
  Transmission Date: 20140515
  Serious: Yes (Death)
  Sender: FDA-Public Use
  Company Number: US-CELGENEUS-163-C4047-13064200

PATIENT
  Age: 63 Year
  Sex: Male
  Weight: 88.2 kg

DRUGS (23)
  1. POMALYST [Suspect]
     Indication: PLASMA CELL MYELOMA
     Dosage: 4 MILLIGRAM
     Route: 048
     Dates: start: 20130508, end: 20130625
  2. FINASTERIDE [Concomitant]
     Indication: PRODUCT USED FOR UNKNOWN INDICATION
     Dosage: 5 MILLIGRAM
     Route: 048
     Dates: start: 20130423
  3. FINASTERIDE [Concomitant]
     Dosage: 5 MILLIGRAM
     Route: 048
     Dates: start: 20130528
  4. AMLODIPINE BESYLATE [Concomitant]
     Indication: ANGINA PECTORIS
     Dosage: 10 MILLIGRAM
     Route: 048
     Dates: start: 20121130
  5. AMLODIPINE BESYLATE [Concomitant]
     Dosage: 10 MILLIGRAM
     Route: 048
     Dates: start: 20130528
  6. LORAZEPAM [Concomitant]
     Indication: ANXIETY
     Dosage: 3 MILLIGRAM
     Route: 048
     Dates: start: 20121112
  7. BUPROPION [Concomitant]
     Indication: DEPRESSION
     Dosage: 150 MILLIGRAM
     Route: 048
     Dates: start: 20130528
  8. BUPROPION [Concomitant]
     Dosage: 150 MILLIGRAM
     Route: 048
     Dates: start: 20120705
  9. CITALOPRAM [Concomitant]
     Indication: DEPRESSION
     Dosage: 40 MILLIGRAM
     Route: 048
     Dates: start: 20130528
  10. CITALOPRAM [Concomitant]
     Dosage: 40 MILLIGRAM
     Route: 048
     Dates: start: 20121211
  11. ACYCLOVIR SODIUM [Concomitant]
     Indication: ANTIVIRAL PROPHYLAXIS
     Dosage: 800 MILLIGRAM
     Route: 048
     Dates: start: 20130426
  12. DEXAMETHASONE [Concomitant]
     Indication: PRODUCT USED FOR UNKNOWN INDICATION
     Dosage: 4 MILLIGRAM
     Route: 048
     Dates: start: 20130507
  13. FUROSEMIDE [Concomitant]
     Indication: PRODUCT USED FOR UNKNOWN INDICATION
     Dosage: 20 MILLIGRAM
     Route: 048
     Dates: start: 20121112
  14. FUROSEMIDE [Concomitant]
     Dosage: 20 MILLIGRAM
     Route: 048
     Dates: start: 20130528
  15. POTASSIUM [Concomitant]
     Indication: BLOOD POTASSIUM DECREASED
     Dosage: 10 MILLIEQUIVALENTS
     Route: 048
     Dates: start: 20120705
  16. LACTULOSE [Concomitant]
     Indication: CONSTIPATION PROPHYLAXIS
     Dosage: 15 MILLILITER
     Route: 048
     Dates: start: 20130528
  17. ASPIRIN [Concomitant]
     Indication: PRODUCT USED FOR UNKNOWN INDICATION
     Dosage: 81 MILLIGRAM
     Route: 048
     Dates: start: 20120705
  18. HYDROCODONE/APAP [Concomitant]
     Indication: ANALGESIC THERAPY
     Dosage: 40 MILLIGRAM
     Route: 048
     Dates: start: 20130613
  19. OXYCODONE [Concomitant]
     Indication: ANALGESIC THERAPY
     Dosage: 40 MILLIGRAM
     Route: 048
     Dates: start: 20130613
  20. ALBUTEROL [Concomitant]
     Indication: RESPIRATORY DISORDER
     Route: 065
     Dates: start: 20120419
  21. NICOTINE CQ [Concomitant]
     Indication: TOBACCO USER
     Dosage: 21 MICROGRAM
     Route: 062
     Dates: start: 20120206
  22. CHOLECALCIFEROL [Concomitant]
     Indication: VITAMIN D
     Dosage: 2000 IU (INTERNATIONAL UNIT)
     Route: 048
     Dates: start: 20110811
  23. CALCIUM [Concomitant]
     Indication: PRODUCT USED FOR UNKNOWN INDICATION
     Dosage: 1500 MILLIGRAM
     Route: 048
     Dates: start: 20110811

REACTIONS (1)
  - Plasma cell myeloma [Fatal]
